FAERS Safety Report 12657492 (Version 1)
Quarter: 2016Q3

REPORT INFORMATION
  Report Type: Spontaneous
  Country: US (occurrence: US)
  Receive Date: 20160816
  Receipt Date: 20160816
  Transmission Date: 20161109
  Serious: No
  Sender: FDA-Public Use
  Company Number: US-ELI_LILLY_AND_COMPANY-US201608005774

PATIENT
  Age: 52 Year
  Sex: Female

DRUGS (6)
  1. METFORMIN [Concomitant]
     Active Substance: METFORMIN HYDROCHLORIDE
     Dosage: 1000 MG, BID
  2. HUMALOG [Suspect]
     Active Substance: INSULIN LISPRO
     Dosage: 14 U, QD BEFORE DINNER
     Route: 065
     Dates: start: 201512
  3. HUMALOG [Suspect]
     Active Substance: INSULIN LISPRO
     Dosage: 9 U, QD BEFORE LUNCH
     Route: 065
     Dates: start: 201512
  4. HUMALOG [Suspect]
     Active Substance: INSULIN LISPRO
     Dosage: UNK, PRN
     Route: 065
     Dates: start: 201512
  5. LANTUS [Concomitant]
     Active Substance: INSULIN GLARGINE
     Dosage: 62 U, QD
  6. HUMALOG [Suspect]
     Active Substance: INSULIN LISPRO
     Indication: TYPE 2 DIABETES MELLITUS
     Dosage: 8 U, QD, BEFORE BREAKFAST
     Route: 065
     Dates: start: 201512

REACTIONS (6)
  - Blood glucose increased [Recovered/Resolved]
  - Dizziness [Recovered/Resolved]
  - Malaise [Recovered/Resolved]
  - Dry mouth [Recovered/Resolved]
  - Glycosylated haemoglobin increased [Unknown]
  - Incorrect dose administered [Recovered/Resolved]

NARRATIVE: CASE EVENT DATE: 201605
